FAERS Safety Report 5525316-7 (Version None)
Quarter: 2007Q4

REPORT INFORMATION
  Report Type: 
  Country: None (occurrence: None)
  Receive Date: 20071126
  Receipt Date: 20070917
  Transmission Date: 20080405
  Serious: Yes (Death)
  Sender: FDA-Public Use
  Company Number: US-ASTRAZENECA-2007UW21750

PATIENT
  Sex: Female

DRUGS (1)
  1. SEROQUEL [Suspect]
     Indication: SLEEP DISORDER
     Dosage: 100
     Route: 048
     Dates: end: 20060501

REACTIONS (2)
  - DEATH [None]
  - TYPE 2 DIABETES MELLITUS [None]
